FAERS Safety Report 16720283 (Version 1)
Quarter: 2019Q3

REPORT INFORMATION
  Report Type: Spontaneous
  Country: US (occurrence: US)
  Receive Date: 20190702
  Receipt Date: 20190702
  Transmission Date: 20191005
  Serious: No
  Sender: FDA-Public Use
  Company Number: None

PATIENT
  Age: 90 Year
  Sex: Female
  Weight: 55.34 kg

DRUGS (7)
  1. RESTORIL [Concomitant]
     Active Substance: TEMAZEPAM
  2. COLACE [Concomitant]
     Active Substance: DOCUSATE SODIUM
  3. LACTULOSE 10GM SOLUTION [Suspect]
     Active Substance: LACTULOSE
     Indication: CONSTIPATION
     Dosage: ?          QUANTITY:1 TABLESPOON;?
     Route: 048
     Dates: start: 20190601, end: 20190601
  4. ONE DAILY WOMEN^S 50+ [Concomitant]
  5. VITAMIN C [Concomitant]
     Active Substance: ASCORBIC ACID
  6. GELATIN [Concomitant]
     Active Substance: GELATIN
  7. MILK OF MAGENSIA [Concomitant]

REACTIONS (5)
  - Abdominal pain upper [None]
  - Dyspnoea [None]
  - Flatulence [None]
  - Eructation [None]
  - Oropharyngeal discomfort [None]
